FAERS Safety Report 4451296-1 (Version None)
Quarter: 2004Q3

REPORT INFORMATION
  Report Type: 
  Country: None (occurrence: None)
  Receive Date: 20040913
  Receipt Date: 20040707
  Transmission Date: 20050211
  Serious: No
  Sender: FDA-Public Use
  Company Number: 2004-BP-05542BP(0)

PATIENT
  Age: 71 Year
  Sex: Female

DRUGS (6)
  1. SPIRIVA [Suspect]
     Indication: ASTHMA
     Dosage: 18 MCG (18 MCG), IH
  2. ADVAIR (SERETIDE MITE) [Concomitant]
  3. LANOXIN [Concomitant]
  4. VITAMINS (VITAMINS) [Concomitant]
  5. ESTRADIO [Concomitant]
  6. DIGOXIN [Concomitant]

REACTIONS (1)
  - EYE IRRITATION [None]
